FAERS Safety Report 23819005 (Version 1)
Quarter: 2024Q2

REPORT INFORMATION
  Report Type: Spontaneous
  Country: US (occurrence: US)
  Receive Date: 20240506
  Receipt Date: 20240506
  Transmission Date: 20240716
  Serious: No
  Sender: FDA-Public Use
  Company Number: US-IMMUNOCORE, LTD.-2024-IMC-002525

PATIENT
  Age: 76 Year
  Sex: Female
  Weight: 77.098 kg

DRUGS (18)
  1. KIMMTRAK [Suspect]
     Active Substance: TEBENTAFUSP-TEBN
     Indication: Metastatic ocular melanoma
     Dosage: 20 MICROGRAM, DOSE 1
     Dates: start: 20231019
  2. KIMMTRAK [Suspect]
     Active Substance: TEBENTAFUSP-TEBN
     Dosage: UNK DOSE2
     Dates: start: 20231026
  3. KIMMTRAK [Suspect]
     Active Substance: TEBENTAFUSP-TEBN
     Dosage: UNK DOSE 3
     Dates: start: 20231102
  4. KIMMTRAK [Suspect]
     Active Substance: TEBENTAFUSP-TEBN
     Dosage: UNK DOSE 4
     Dates: start: 20231116
  5. KIMMTRAK [Suspect]
     Active Substance: TEBENTAFUSP-TEBN
     Dosage: UNK DOSE 15
  6. JARDIANCE [Concomitant]
     Active Substance: EMPAGLIFLOZIN
     Indication: Type 2 diabetes mellitus
     Dosage: UNK
  7. TYLENOL [Concomitant]
     Active Substance: ACETAMINOPHEN
     Indication: Pyrexia
     Dosage: UNK
  8. ATORVASTATIN [Concomitant]
     Active Substance: ATORVASTATIN
     Indication: Blood cholesterol increased
     Dosage: UNK
  9. NOVOLOG [Concomitant]
     Active Substance: INSULIN ASPART
     Indication: Type 2 diabetes mellitus
     Dosage: UNK
  10. LANTUS SOLOSTAR [Concomitant]
     Active Substance: INSULIN GLARGINE
     Indication: Type 2 diabetes mellitus
     Dosage: UNK
  11. LEVOTHYROXINE [Concomitant]
     Active Substance: LEVOTHYROXINE\LEVOTHYROXINE SODIUM
     Indication: Hypothyroidism
     Dosage: UNK
  12. LISINOPRIL [Concomitant]
     Active Substance: LISINOPRIL
     Indication: Hypertension
     Dosage: UNK
  13. OZEMPIC [Concomitant]
     Active Substance: SEMAGLUTIDE
     Indication: Type 2 diabetes mellitus
     Dosage: UNK
  14. VERAPAMIL [Concomitant]
     Active Substance: VERAPAMIL HYDROCHLORIDE
     Indication: Hypertension
     Dosage: UNK
  15. ASPIRIN [Concomitant]
     Active Substance: ASPIRIN
     Indication: Product used for unknown indication
  16. PROBIOTICS NOS [Concomitant]
     Active Substance: PROBIOTICS NOS
     Indication: Product used for unknown indication
     Dosage: UNK
  17. CLOBETASOL PROPIONATE [Concomitant]
     Active Substance: CLOBETASOL PROPIONATE
     Indication: Pruritus
     Dosage: UNK
  18. ALLEGRA ALLERGY [Concomitant]
     Active Substance: FEXOFENADINE HYDROCHLORIDE
     Indication: Product used for unknown indication
     Dosage: UNK

REACTIONS (10)
  - Vulvovaginal pruritus [Unknown]
  - Crying [Unknown]
  - Pain [Recovered/Resolved]
  - Onychoclasis [Unknown]
  - Vulvovaginal burning sensation [Unknown]
  - Pyrexia [Recovered/Resolved]
  - Rash [Recovered/Resolved]
  - Headache [Recovered/Resolved]
  - Skin exfoliation [Unknown]
  - Product dose omission issue [Unknown]

NARRATIVE: CASE EVENT DATE: 20231019
